FAERS Safety Report 5506419-X (Version None)
Quarter: 2007Q4

REPORT INFORMATION
  Report Type: 
  Country: None (occurrence: None)
  Receive Date: 20071101
  Receipt Date: 20071015
  Transmission Date: 20080405
  Serious: No
  Sender: FDA-Public Use
  Company Number: 59648

PATIENT
  Age: 16 Year
  Sex: Male

DRUGS (2)
  1. MIGRAINE CAPLET/PERRIGO [Suspect]
     Indication: HEADACHE
     Dosage: 2 CAPSULES/ONCE/ORAL
     Route: 048
     Dates: start: 20070401, end: 20070401
  2. ACETAMINOPHEN [Suspect]
     Indication: HEADACHE
     Dosage: 2 CAPSULES/ONCE/ORAL
     Route: 048
     Dates: start: 20070501, end: 20070501

REACTIONS (1)
  - DRUG HYPERSENSITIVITY [None]
